FAERS Safety Report 15043279 (Version 1)
Quarter: 2018Q2

REPORT INFORMATION
  Report Type: Spontaneous
  Country: KR (occurrence: KR)
  Receive Date: 20180621
  Receipt Date: 20180621
  Transmission Date: 20180711
  Serious: Yes (Hospitalization)
  Sender: FDA-Public Use
  Company Number: US-ASTRAZENECA-2018SE74163

PATIENT
  Age: 57 Year
  Sex: Female
  Weight: 56 kg

DRUGS (23)
  1. LOPERAMIDE [Concomitant]
     Active Substance: LOPERAMIDE
     Indication: DIARRHOEA
     Dosage: UNK
     Dates: start: 20180420
  2. CAPRIL [Concomitant]
     Indication: CARDIAC FAILURE
     Dosage: UNK
     Dates: start: 20180511, end: 20180513
  3. PENIRAMIN [Concomitant]
     Indication: PRURITUS
     Dosage: UNK
     Dates: start: 20180515, end: 20180515
  4. ESOMEPRAZOLE [Suspect]
     Active Substance: ESOMEPRAZOLE
     Route: 048
     Dates: start: 20170119, end: 20170123
  5. PF-06747775 [Suspect]
     Active Substance: INVESTIGATIONAL PRODUCT
     Indication: NON-SMALL CELL LUNG CANCER
     Dosage: 150 MG, ONCE DAILY CONTINUOUS(21 DAY CYCLE) EVERY CYCLE
     Route: 048
     Dates: start: 20170309, end: 20180510
  6. MINOCIN [Concomitant]
     Active Substance: MINOCYCLINE HYDROCHLORIDE
     Indication: PARONYCHIA
     Dosage: UNK
     Dates: start: 20170217
  7. TRITACE [Concomitant]
     Active Substance: RAMIPRIL
     Indication: CARDIAC FAILURE
     Dosage: UNK
     Dates: start: 20180514
  8. LASIX [Concomitant]
     Active Substance: FUROSEMIDE
     Indication: CARDIAC FAILURE
     Dosage: UNK
     Dates: start: 20180511
  9. TYLENOL [Concomitant]
     Active Substance: ACETAMINOPHEN
     Indication: UPPER RESPIRATORY TRACT INFLAMMATION
     Dosage: UNK
     Dates: start: 20180517, end: 20180525
  10. ITRACONAZOLE. [Suspect]
     Active Substance: ITRACONAZOLE
     Route: 048
     Dates: start: 20170127, end: 20170131
  11. EBASTEL [Concomitant]
     Active Substance: EBASTINE
     Indication: PRURITUS
     Dosage: UNK
     Dates: start: 20180420
  12. CONCOR [Concomitant]
     Active Substance: BISOPROLOL FUMARATE
     Indication: CARDIAC FAILURE
     Dosage: UNK
     Dates: start: 20180512, end: 20180516
  13. RHINATHIOL [Concomitant]
     Active Substance: CARBOCYSTEINE
     Indication: BLOOD CREATININE INCREASED
     Dosage: UNK
     Dates: start: 20180213
  14. PERIDEX [Concomitant]
     Active Substance: CHLORHEXIDINE GLUCONATE
     Indication: STOMATITIS
     Dosage: UNK
     Dates: start: 20180420
  15. MEGACE [Concomitant]
     Active Substance: MEGESTROL ACETATE
     Indication: DECREASED APPETITE
     Dosage: UNK
     Dates: start: 20180510
  16. STILNOX CR [Concomitant]
     Active Substance: ZOLPIDEM TARTRATE
     Indication: INSOMNIA
     Dosage: UNK
     Dates: start: 20170118
  17. PROCORALAN [Concomitant]
     Active Substance: IVABRADINE
     Indication: CARDIAC FAILURE
     Dosage: UNK
     Dates: start: 20180516
  18. DUPHALAC EASY [Concomitant]
     Indication: CONSTIPATION
     Dosage: UNK
     Dates: start: 20180515
  19. PF-06747775 [Suspect]
     Active Substance: INVESTIGATIONAL PRODUCT
     Indication: NON-SMALL CELL LUNG CANCER
     Dosage: 200.0MG EVERY CYCLE
     Route: 048
     Dates: start: 20170111, end: 2017
  20. XYZAL [Concomitant]
     Active Substance: LEVOCETIRIZINE DIHYDROCHLORIDE
     Indication: PRURITUS
     Dosage: UNK
     Dates: start: 20180515, end: 20180523
  21. DESOWEN LOTION [Concomitant]
     Indication: PRURITUS
     Dosage: UNK
     Dates: start: 20180515
  22. COUGH SYRUP [Concomitant]
     Active Substance: DEXTROMETHORPHAN HYDROBROMIDE\GUAIFENESIN
     Indication: UPPER RESPIRATORY TRACT INFLAMMATION
     Dosage: UNK
     Dates: start: 20180517, end: 20180525
  23. ALDACTONE [Concomitant]
     Active Substance: SPIRONOLACTONE
     Indication: CARDIAC FAILURE
     Dosage: UNK
     Dates: start: 20180511, end: 20180523

REACTIONS (2)
  - Cardiac failure [Unknown]
  - Cerebrovascular accident [Recovered/Resolved]

NARRATIVE: CASE EVENT DATE: 20180525
